FAERS Safety Report 24304706 (Version 2)
Quarter: 2024Q3

REPORT INFORMATION
  Report Type: Spontaneous
  Country: US (occurrence: US)
  Receive Date: 20240910
  Receipt Date: 20240927
  Transmission Date: 20241016
  Serious: No
  Sender: SUNOVION
  Company Number: US-SUMITOMO PHARMA SWITZERLAND GMBH-2024SPA002242

PATIENT

DRUGS (6)
  1. GEMTESA [Suspect]
     Active Substance: VIBEGRON
     Indication: Hypertonic bladder
     Dosage: 75 MG
     Route: 048
     Dates: start: 2021, end: 20230114
  2. SOLIFENACIN [Suspect]
     Active Substance: SOLIFENACIN
     Indication: Hypertonic bladder
     Dosage: 5 MG, QD
     Route: 065
  3. TAMSULOSIN [Concomitant]
     Active Substance: TAMSULOSIN
     Indication: Prostatic disorder
     Dosage: 0.4 MG, QD
     Route: 065
  4. FINASTERIDE [Concomitant]
     Active Substance: FINASTERIDE
     Indication: Prostatic disorder
     Dosage: 5 MG, QD
     Route: 065
  5. LISINOPRIL [Concomitant]
     Active Substance: LISINOPRIL
     Indication: Hypertension
     Dosage: 40 MG, QD
     Route: 065
  6. CHLORTHALIDONE [Concomitant]
     Active Substance: CHLORTHALIDONE
     Indication: Hypertension
     Dosage: 25 MG, QD
     Route: 065

REACTIONS (2)
  - Nocturia [Unknown]
  - Sleep disorder [Unknown]
